FAERS Safety Report 5565791-5 (Version None)
Quarter: 2007Q4

REPORT INFORMATION
  Report Type: 
  Country: None (occurrence: None)
  Receive Date: 20071213
  Receipt Date: 20071130
  Transmission Date: 20080405
  Serious: Yes (Other)
  Sender: FDA-Public Use
  Company Number: 021194

PATIENT
  Sex: Female
  Weight: 68.9 kg

DRUGS (7)
  1. WARFARIN SODIUM [Suspect]
     Indication: HEART RATE IRREGULAR
     Dosage: 25 MG, WEEKLY,
     Dates: start: 19800101
  2. LIPITOR [Concomitant]
  3. DIOVAN [Concomitant]
  4. DIGOXIN [Concomitant]
  5. ALLOPURINOL [Concomitant]
  6. FUROSEMIDE [Concomitant]
  7. NITROQUICK (GLYCERYL TRINITRATE) [Concomitant]

REACTIONS (8)
  - ASTHMA [None]
  - COLON CANCER [None]
  - CONDITION AGGRAVATED [None]
  - CONTUSION [None]
  - FOOD INTERACTION [None]
  - SKIN DISORDER [None]
  - SKIN PAPILLOMA [None]
  - VEIN DISORDER [None]
